FAERS Safety Report 9258243 (Version 1)
Quarter: 2013Q2

REPORT INFORMATION
  Report Type: Spontaneous
  Country: US (occurrence: None)
  Receive Date: 20130424
  Receipt Date: 20130424
  Transmission Date: 20140414
  Serious: No
  Sender: FDA-Public Use
  Company Number: None

PATIENT
  Age: 65 Year
  Sex: Female
  Weight: 83.92 kg

DRUGS (1)
  1. LISINOPRIL [Suspect]
     Indication: BLOOD PRESSURE ABNORMAL
     Dosage: 1 TAB
     Route: 048
     Dates: start: 201212

REACTIONS (12)
  - Cough [None]
  - Choking [None]
  - Insomnia [None]
  - Chest pain [None]
  - Eye swelling [None]
  - Swelling face [None]
  - Dizziness [None]
  - Stress [None]
  - Headache [None]
  - Lacrimation increased [None]
  - Weight increased [None]
  - Urinary incontinence [None]
